FAERS Safety Report 7016690-3 (Version None)
Quarter: 2010Q3

REPORT INFORMATION
  Report Type: 
  Country: None (occurrence: None)
  Receive Date: 20100927
  Receipt Date: 20100917
  Transmission Date: 20110219
  Serious: Yes (Hospitalization)
  Sender: FDA-Public Use
  Company Number: PHHY2010DE17140

PATIENT
  Age: 63 Year
  Sex: Female

DRUGS (1)
  1. VOLTAREN [Suspect]
     Indication: BONE DISORDER
     Dosage: 1 DF, UNK
     Route: 048
     Dates: start: 20100201, end: 20100201

REACTIONS (3)
  - LIP SWELLING [None]
  - LOSS OF CONSCIOUSNESS [None]
  - SWELLING FACE [None]
